FAERS Safety Report 5506699-0 (Version None)
Quarter: 2007Q4

REPORT INFORMATION
  Report Type: 
  Country: None (occurrence: None)
  Receive Date: 20071105
  Receipt Date: 20071026
  Transmission Date: 20080405
  Serious: Yes (Hospitalization)
  Sender: FDA-Public Use
  Company Number: CA-BAXTER-2007BH008505

PATIENT
  Age: 71 Year
  Sex: Male
  Weight: 115 kg

DRUGS (3)
  1. DIANEAL [Suspect]
     Indication: PERITONEAL DIALYSIS
     Dosage: DOSE UNIT:UNKNOWN
     Route: 033
  2. DIANEAL [Suspect]
     Indication: PERITONEAL DIALYSIS
     Dosage: DOSE UNIT:UNKNOWN
     Route: 033
  3. CEFAZOLIN SODIUM [Suspect]
     Indication: PERITONITIS BACTERIAL
     Dosage: DOSE UNIT:UNKNOWN
     Route: 065
     Dates: start: 20071018, end: 20071018

REACTIONS (2)
  - ANAPHYLACTIC REACTION [None]
  - PERITONITIS BACTERIAL [None]
